FAERS Safety Report 8475773-1 (Version None)
Quarter: 2012Q2

REPORT INFORMATION
  Report Type: 
  Country: None (occurrence: None)
  Receive Date: 20120628
  Receipt Date: 20120613
  Transmission Date: 20120825
  Serious: Yes (Death)
  Sender: FDA-Public Use
  Company Number: DK-WATSON-2011-22664

PATIENT
  Sex: Female

DRUGS (9)
  1. ZIPRASIDONE HCL [Suspect]
     Indication: SCHIZOAFFECTIVE DISORDER
     Dosage: 40 MG, BID
     Route: 048
     Dates: end: 20111023
  2. CENTYL MED KALIUMKLORID [Concomitant]
     Indication: PRODUCT USED FOR UNKNOWN INDICATION
     Dosage: UNK
     Dates: end: 20111023
  3. LITHIUM CITRATE [Suspect]
     Indication: SCHIZOAFFECTIVE DISORDER
     Dosage: 6 MMOL, UNK
     Route: 048
     Dates: end: 20111023
  4. MIRTAZAPINE [Suspect]
     Indication: SCHIZOAFFECTIVE DISORDER
     Dosage: 30 MG, DAILY
     Route: 048
     Dates: start: 20110101, end: 20111023
  5. ESCITALOPRAM [Suspect]
     Indication: SCHIZOAFFECTIVE DISORDER
     Dosage: 30 MG, DAILY
     Route: 048
     Dates: end: 20111023
  6. FRAGMIN [Concomitant]
     Indication: PRODUCT USED FOR UNKNOWN INDICATION
     Dosage: UNK
  7. FERRO DURETTER [Concomitant]
     Dosage: 100 MG, DAILY
     Route: 065
     Dates: end: 20111023
  8. AMLODIPINE ACTAVIS [Concomitant]
     Indication: PRODUCT USED FOR UNKNOWN INDICATION
     Dosage: UNK
  9. ALPRAZOLAM [Concomitant]
     Indication: PRODUCT USED FOR UNKNOWN INDICATION
     Dosage: 0.5 MG, DAILY
     Route: 065
     Dates: end: 20111022

REACTIONS (14)
  - DYSPNOEA [None]
  - FALL [None]
  - RENAL FAILURE [None]
  - HEPATIC CIRRHOSIS [None]
  - HUMERUS FRACTURE [None]
  - ORGAN FAILURE [None]
  - OSTEOSYNTHESIS [None]
  - HYPERTENSION [None]
  - LACUNAR INFARCTION [None]
  - LACTIC ACIDOSIS [None]
  - CARDIAC HYPERTROPHY [None]
  - NEUROLEPTIC MALIGNANT SYNDROME [None]
  - PYREXIA [None]
  - RHABDOMYOLYSIS [None]
